FAERS Safety Report 12089020 (Version 3)
Quarter: 2016Q2

REPORT INFORMATION
  Report Type: Report from Study
  Country: AU (occurrence: AU)
  Receive Date: 20160218
  Receipt Date: 20160401
  Transmission Date: 20160815
  Serious: Yes (Other)
  Sender: FDA-Public Use
  Company Number: AU-VERTEX PHARMACEUTICALS-2016-000795

PATIENT
  Age: 7 Year
  Sex: Female
  Weight: 25 kg

DRUGS (16)
  1. PULMOZYME [Concomitant]
     Active Substance: DORNASE ALFA
     Indication: CYSTIC FIBROSIS LUNG
     Dosage: 2.5 MG, QD
     Route: 055
     Dates: start: 2012
  2. TOPPIN [Concomitant]
     Indication: PROPHYLAXIS AGAINST DEHYDRATION
     Dosage: 2 DF, TID
     Route: 048
     Dates: start: 2012
  3. VENTOLIN [Concomitant]
     Active Substance: ALBUTEROL SULFATE
     Indication: ASTHMA
     Dosage: 400 ?G, PRN
     Route: 055
     Dates: start: 2011
  4. PANADOL [Concomitant]
     Active Substance: ACETAMINOPHEN
     Indication: HEADACHE
     Dosage: 360 MG, PRN
     Route: 048
     Dates: start: 2013
  5. VX-809/VX-770 COMBINATION [Suspect]
     Active Substance: IVACAFTOR\LUMACAFTOR
     Dosage: LUMACAFTOR 200 MG/IVACAFTOR 250 MG BID
     Route: 048
     Dates: start: 20160223
  6. VX-809/VX-770 COMBINATION [Suspect]
     Active Substance: IVACAFTOR\LUMACAFTOR
     Indication: CYSTIC FIBROSIS
     Dosage: LUMACAFTOR 200 MG/IVACAFTOR 250 MG BID
     Route: 048
     Dates: start: 20160208, end: 20160208
  7. CREON [Concomitant]
     Active Substance: PANCRELIPASE AMYLASE\PANCRELIPASE LIPASE\PANCRELIPASE PROTEASE
     Indication: PANCREATIC INSUFFICIENCY
     Dosage: 1 DF, PRN
     Route: 048
     Dates: start: 2009
  8. LEVEMIR [Concomitant]
     Active Substance: INSULIN DETEMIR
     Indication: CYSTIC FIBROSIS RELATED DIABETES
     Dosage: 2 IU, QD
     Route: 058
     Dates: start: 201301
  9. HYPERSAL [Concomitant]
     Indication: CYSTIC FIBROSIS LUNG
     Dosage: 4 ML, QD
     Route: 055
     Dates: start: 2015
  10. SORBOLENE [Concomitant]
     Indication: ECZEMA
     Dosage: 1 APPLICATION, PRN
     Route: 061
     Dates: start: 2008
  11. SIGMACORT [Concomitant]
     Indication: ECZEMA
     Dosage: 1 APPLICATION, PRN
     Route: 061
     Dates: start: 2009
  12. FLIXOTIDE [Concomitant]
     Active Substance: FLUTICASONE PROPIONATE
     Indication: ASTHMA
     Dosage: 125 ?G, BID
     Route: 055
     Dates: start: 2011
  13. PHENERGAN [Concomitant]
     Active Substance: PROMETHAZINE HYDROCHLORIDE
     Indication: ECZEMA
     Dosage: 10 ML, PRN
     Route: 048
     Dates: start: 2012
  14. PARACHOC [Concomitant]
     Indication: DISTAL INTESTINAL OBSTRUCTION SYNDROME
     Dosage: 10 ML, PRN
     Route: 048
     Dates: start: 2011
  15. VIT ABDECK [Concomitant]
     Indication: VITAMIN SUPPLEMENTATION
     Dosage: 1 DF, QOD
     Route: 048
     Dates: start: 2012
  16. NUROFEN [Concomitant]
     Active Substance: IBUPROFEN
     Indication: HEADACHE
     Dosage: 160 MG, PRN
     Route: 048
     Dates: start: 2013

REACTIONS (1)
  - Obstructive airways disorder [Recovered/Resolved]

NARRATIVE: CASE EVENT DATE: 20160208
